FAERS Safety Report 11121789 (Version 2)
Quarter: 2015Q2

REPORT INFORMATION
  Report Type: Report from Study
  Country: US (occurrence: US)
  Receive Date: 20150519
  Receipt Date: 20150602
  Transmission Date: 20150821
  Serious: Yes (Hospitalization)
  Sender: FDA-Public Use
  Company Number: US-009507513-1505USA005347

PATIENT
  Age: 75 Year
  Sex: Male
  Weight: 89.7 kg

DRUGS (4)
  1. VORINOSTAT [Suspect]
     Active Substance: VORINOSTAT
     Dosage: 300 MG, BID, ON DAYS 3-9 OF 28 DAY CYCLE (CYCLE 27)
     Route: 048
     Dates: start: 20150410, end: 20150418
  2. VORINOSTAT [Suspect]
     Active Substance: VORINOSTAT
     Indication: MYELODYSPLASTIC SYNDROME
     Dosage: 300 MG, BID, ON DAYS 3-9 OF 28 DAY CYCLE
     Route: 048
     Dates: start: 20130321, end: 20130327
  3. AZACITIDINE. [Suspect]
     Active Substance: AZACITIDINE
     Dosage: 75 MG/M2, ON DAYS 1-7 OF 28 DAY CYCLE
     Route: 042
     Dates: start: 20150408, end: 20150414
  4. AZACITIDINE. [Suspect]
     Active Substance: AZACITIDINE
     Indication: MYELODYSPLASTIC SYNDROME
     Dosage: 75 MG/M2, ON DAYS 1-7 OF 28 DAY CYCLE
     Route: 042
     Dates: start: 20130319, end: 20130325

REACTIONS (1)
  - Bronchitis [Unknown]

NARRATIVE: CASE EVENT DATE: 20150512
